FAERS Safety Report 7428983-6 (Version None)
Quarter: 2011Q2

REPORT INFORMATION
  Report Type: 
  Country: None (occurrence: None)
  Receive Date: 20110421
  Receipt Date: 20110413
  Transmission Date: 20111010
  Serious: Yes (Hospitalization, Other)
  Sender: FDA-Public Use
  Company Number: JP-ROCHE-548438

PATIENT
  Age: 48 Year
  Sex: Female

DRUGS (18)
  1. ASPIRIN [Suspect]
     Dosage: FORM: ENTERIC COATING DRUG, DOSAGE IS UNCERTAIN.
     Route: 048
  2. SOLU-MEDROL [Concomitant]
     Route: 041
     Dates: start: 20061001, end: 20061001
  3. ACETAMINOPHEN [Suspect]
     Dosage: FORM: PERORAL AGENT, DOSAGE IS UNCERTAIN.
     Route: 048
  4. SOLU-MEDROL [Concomitant]
     Route: 041
     Dates: start: 20061101, end: 20061201
  5. ROCEPHIN [Suspect]
     Indication: PNEUMONIA MYCOPLASMAL
     Dosage: DOSAGE IS UNCERTAIN.
     Route: 042
     Dates: start: 20061001, end: 20061001
  6. MINOMYCIN [Suspect]
     Indication: PNEUMONIA MYCOPLASMAL
     Route: 065
     Dates: start: 20061001, end: 20061001
  7. SOLU-MEDROL [Concomitant]
     Route: 041
     Dates: start: 20061101, end: 20061101
  8. SOLU-MEDROL [Concomitant]
     Route: 041
     Dates: start: 20061201, end: 20070701
  9. UNASYN [Suspect]
     Indication: PYREXIA
     Dosage: DOSAGE IS UNCERTAIN, FORM; PERORAL AGENT, DRUG: UNASYN (SULTAMICILLIN TOSILATE)
     Route: 048
     Dates: start: 20061012, end: 20061001
  10. BAKTAR [Suspect]
     Indication: PNEUMONIA MYCOPLASMAL
     Dosage: FORM: PERORAL AGENT, DOSAGE IS UNCERTAIN
     Route: 048
     Dates: start: 20061001, end: 20061101
  11. CIPROFLOXACIN HCL [Suspect]
     Indication: PNEUMONIA MYCOPLASMAL
     Dosage: FORM: UNCERTAINITY, DOSAGE IS UNCERTAIN.
     Route: 065
     Dates: start: 20061001, end: 20061001
  12. ZITHROMAX [Concomitant]
     Dosage: DOSAGE IS UNCERTAIN, FORM: PERORAL AGENT
     Route: 048
     Dates: start: 20061001, end: 20061001
  13. SOLU-MEDROL [Concomitant]
     Route: 041
     Dates: start: 20061001, end: 20061001
  14. SOLU-MEDROL [Concomitant]
     Route: 041
     Dates: start: 20061101, end: 20061101
  15. BLOPRESS [Suspect]
     Dosage: FORM REPORTED AS ENTERIC, DOSAGE IS UNCERTAIN.
     Route: 048
     Dates: start: 20061001, end: 20061101
  16. SOLU-MEDROL [Concomitant]
     Route: 041
     Dates: start: 20061101, end: 20061101
  17. PREDNISOLONE [Concomitant]
     Route: 048
     Dates: start: 20061101
  18. SOLU-MEDROL [Concomitant]
     Route: 041
     Dates: start: 20061001, end: 20061101

REACTIONS (1)
  - TOXIC EPIDERMAL NECROLYSIS [None]
